FAERS Safety Report 6372360-6 (Version None)
Quarter: 2009Q3

REPORT INFORMATION
  Report Type: 
  Country: None (occurrence: None)
  Receive Date: 20090924
  Receipt Date: 20081002
  Transmission Date: 20100115
  Serious: Yes (Life-Threatening, Hospitalization)
  Sender: FDA-Public Use
  Company Number: US-ASTRAZENECA-2008UW21587

PATIENT
  Age: 30 Year
  Sex: Female

DRUGS (2)
  1. SEROQUEL XR [Suspect]
     Route: 048
  2. ELMIRON [Suspect]
     Indication: GASTRIC DISORDER

REACTIONS (1)
  - BLOOD PRESSURE DECREASED [None]
